FAERS Safety Report 7377294-6 (Version None)
Quarter: 2011Q1

REPORT INFORMATION
  Report Type: 
  Country: None (occurrence: None)
  Receive Date: 20110328
  Receipt Date: 20110317
  Transmission Date: 20110831
  Serious: Yes (Other)
  Sender: FDA-Public Use
  Company Number: US-JNJFOC-20110308556

PATIENT
  Sex: Female
  Weight: 46.72 kg

DRUGS (3)
  1. DURAGESIC-50 [Suspect]
     Indication: BONE PAIN
     Route: 062
  2. DURAGESIC-50 [Suspect]
     Route: 062
  3. OXYCONTIN [Concomitant]
     Indication: PAIN
     Route: 048

REACTIONS (4)
  - INAPPROPRIATE SCHEDULE OF DRUG ADMINISTRATION [None]
  - BODY HEIGHT DECREASED [None]
  - DRUG PRESCRIBING ERROR [None]
  - SPINAL DISORDER [None]
